FAERS Safety Report 11909547 (Version 1)
Quarter: 2016Q1

REPORT INFORMATION
  Report Type: Report from Study
  Country: CN (occurrence: CN)
  Receive Date: 20160112
  Receipt Date: 20160112
  Transmission Date: 20160526
  Serious: Yes (Other)
  Sender: FDA-Public Use
  Company Number: CN-ROCHE-1627008

PATIENT
  Sex: Female
  Weight: 69 kg

DRUGS (1)
  1. AVASTIN [Suspect]
     Active Substance: BEVACIZUMAB
     Indication: COLORECTAL CANCER
     Route: 041
     Dates: start: 20150203

REACTIONS (4)
  - Lung neoplasm [Unknown]
  - Pulmonary mass [Unknown]
  - Metastases to lung [Unknown]
  - Hepatic cyst [Unknown]
